FAERS Safety Report 5747827-1 (Version None)
Quarter: 2008Q2

REPORT INFORMATION
  Report Type: 
  Country: None (occurrence: None)
  Receive Date: 20080523
  Receipt Date: 20080514
  Transmission Date: 20081010
  Serious: Yes (Hospitalization)
  Sender: FDA-Public Use
  Company Number: B0521594A

PATIENT
  Sex: Female

DRUGS (4)
  1. ONDANSETRON [Suspect]
     Dosage: 4MG TWICE PER DAY
  2. ZANTAC [Suspect]
     Dosage: 150MG PER DAY
  3. CITALOPRAM HYDROBROMIDE [Suspect]
     Indication: DEPRESSION
     Dosage: 40MG PER DAY
  4. URSODIOL [Suspect]
     Dosage: 900MG PER DAY

REACTIONS (8)
  - AUTONOMIC NERVOUS SYSTEM IMBALANCE [None]
  - DRUG EXPOSURE DURING PREGNANCY [None]
  - DRUG INTERACTION [None]
  - DRUG WITHDRAWAL SYNDROME NEONATAL [None]
  - EXTRAPYRAMIDAL DISORDER [None]
  - HYPERTONIA [None]
  - RESPIRATORY DISORDER [None]
  - RESPIRATORY DISTRESS [None]
